FAERS Safety Report 18594297 (Version 2)
Quarter: 2021Q1

REPORT INFORMATION
  Report Type: Spontaneous
  Country: US (occurrence: US)
  Receive Date: 20201209
  Receipt Date: 20210114
  Transmission Date: 20210419
  Serious: Yes (Other)
  Sender: FDA-Public Use
  Company Number: US-GLAXOSMITHKLINE-US2020AMR243034

PATIENT
  Sex: Female

DRUGS (2)
  1. ZEJULA [Suspect]
     Active Substance: NIRAPARIB
     Dosage: 100 MG, QD
     Route: 048
     Dates: end: 202012
  2. ZEJULA [Suspect]
     Active Substance: NIRAPARIB
     Indication: GENITAL NEOPLASM MALIGNANT FEMALE
     Dosage: 100 MG, QD
     Route: 048
     Dates: start: 20200125

REACTIONS (7)
  - Dry skin [Unknown]
  - Abdominal pain [Unknown]
  - Pruritus [Unknown]
  - Weight decreased [Unknown]
  - Tumour marker increased [Not Recovered/Not Resolved]
  - Malignant neoplasm progression [Unknown]
  - Constipation [Unknown]
